FAERS Safety Report 11944766 (Version 1)
Quarter: 2016Q1

REPORT INFORMATION
  Report Type: Spontaneous
  Country: JP (occurrence: JP)
  Receive Date: 20160125
  Receipt Date: 20160125
  Transmission Date: 20160526
  Serious: Yes (Hospitalization)
  Sender: FDA-Public Use
  Company Number: JP-EMD SERONO-8063820

PATIENT
  Age: 26 Year
  Sex: Female

DRUGS (1)
  1. SEROPHENE [Suspect]
     Active Substance: CLOMIPHENE CITRATE
     Indication: INFERTILITY
     Route: 048

REACTIONS (2)
  - Gestational hypertension [Unknown]
  - Twin pregnancy [Unknown]
